FAERS Safety Report 4677333-7 (Version None)
Quarter: 2005Q2

REPORT INFORMATION
  Report Type: 
  Country: None (occurrence: None)
  Receive Date: 20050523
  Receipt Date: 20050505
  Transmission Date: 20051028
  Serious: Yes (Hospitalization)
  Sender: FDA-Public Use
  Company Number: WSDF 309

PATIENT
  Age: 47 Year
  Sex: Female

DRUGS (1)
  1. WINRHO SDF [Suspect]
     Indication: IDIOPATHIC THROMBOCYTOPENIC PURPURA
     Dosage: 75 MCG/KG, IV, ONCE
     Route: 042
     Dates: start: 20021102

REACTIONS (7)
  - BLOOD BILIRUBIN INCREASED [None]
  - CONDITION AGGRAVATED [None]
  - ELECTROCARDIOGRAM ABNORMAL [None]
  - HAEMOGLOBIN DECREASED [None]
  - HAEMOLYSIS [None]
  - JAUNDICE [None]
  - PULMONARY OEDEMA [None]
